FAERS Safety Report 21073421 (Version 1)
Quarter: 2022Q3

REPORT INFORMATION
  Report Type: Spontaneous
  Country: JP (occurrence: JP)
  Receive Date: 20220713
  Receipt Date: 20220713
  Transmission Date: 20221026
  Serious: Yes (Other)
  Sender: FDA-Public Use
  Company Number: JP-STRIDES ARCOLAB LIMITED-2022SP008578

PATIENT
  Sex: Female

DRUGS (2)
  1. DEXAMETHASONE [Suspect]
     Active Substance: DEXAMETHASONE
     Indication: Immune thrombocytopenia
     Dosage: UNK, CYCLICAL (HIGH-DOSE; FOR 4 DAYS OVER 1-4 CYCLES)
     Route: 065
  2. ESTROGENS\PROGESTERONE [Concomitant]
     Active Substance: ESTROGENS\PROGESTERONE
     Indication: Dysmenorrhoea
     Dosage: UNK
     Route: 065

REACTIONS (2)
  - Retinal vein occlusion [Recovered/Resolved]
  - Retinal vein thrombosis [Recovered/Resolved]
